FAERS Safety Report 14959076 (Version 5)
Quarter: 2021Q3

REPORT INFORMATION
  Report Type: Spontaneous
  Country: JP (occurrence: JP)
  Receive Date: 20180531
  Receipt Date: 20210804
  Transmission Date: 20211014
  Serious: Yes (Hospitalization, Disabling)
  Sender: FDA-Public Use
  Company Number: JP-FERRINGPH-2018FE02576

PATIENT
  Age: 36 Year
  Sex: Female
  Weight: 61 kg

DRUGS (4)
  1. HCG [Suspect]
     Active Substance: GONADOTROPHIN, CHORIONIC
     Indication: OVULATION INDUCTION
  2. MENOTROPHIN [Suspect]
     Active Substance: MENOTROPINS
     Indication: INFERTILITY
     Dosage: 150 IU, UNK
     Route: 065
     Dates: start: 20180410, end: 20180418
  3. MENOTROPHIN [Suspect]
     Active Substance: MENOTROPINS
     Indication: OVULATION INDUCTION
  4. HCG [Suspect]
     Active Substance: GONADOTROPHIN, CHORIONIC
     Indication: INFERTILITY
     Dosage: 5000 IU, UNK
     Route: 065
     Dates: start: 20180419

REACTIONS (2)
  - Ovarian hyperstimulation syndrome [Recovering/Resolving]
  - Cerebral infarction [Recovering/Resolving]

NARRATIVE: CASE EVENT DATE: 20180426
